FAERS Safety Report 5532340-7 (Version None)
Quarter: 2007Q4

REPORT INFORMATION
  Report Type: 
  Country: None (occurrence: None)
  Receive Date: 20071129
  Receipt Date: 20071124
  Transmission Date: 20080405
  Serious: Yes (Other)
  Sender: FDA-Public Use
  Company Number: CHPA2007US12579

PATIENT
  Age: 30 Year
  Sex: Female

DRUGS (2)
  1. GAS-X MAXIMUM STRENGTH SOFTGELS (NCH) (SIMETHICONE) SOLFT GELATIN CAPS [Suspect]
     Indication: FLATULENCE
     Dosage: 332 MG, ONCE/SINGLE, ORAL
     Route: 048
     Dates: start: 20071123, end: 20071123
  2. IBUPROFEN [Concomitant]

REACTIONS (1)
  - FAECES DISCOLOURED [None]
